FAERS Safety Report 4874344-3 (Version None)
Quarter: 2006Q1

REPORT INFORMATION
  Report Type: 
  Country: None (occurrence: None)
  Receive Date: 20060104
  Receipt Date: 20051222
  Transmission Date: 20060701
  Serious: Yes (Other)
  Sender: FDA-Public Use
  Company Number: 2005172466

PATIENT
  Age: 46 Year
  Sex: Female
  Weight: 54.4316 kg

DRUGS (4)
  1. LYRICA [Suspect]
     Indication: BACK PAIN
     Dosage: 150 MG (75 MG, 2 IN 1 D), ORAL
     Route: 048
     Dates: start: 20051118, end: 20051221
  2. LYRICA [Suspect]
     Indication: FIBROMYALGIA
     Dosage: 150 MG (75 MG, 2 IN 1 D), ORAL
     Route: 048
     Dates: start: 20051118, end: 20051221
  3. CYMBALTA [Concomitant]
  4. QUININE SULFATE [Concomitant]

REACTIONS (7)
  - BREAST TENDERNESS [None]
  - IMPAIRED HEALING [None]
  - INFECTION [None]
  - SKIN LACERATION [None]
  - UTERINE DISORDER [None]
  - UTERINE HAEMORRHAGE [None]
  - UTERINE POLYP [None]
